FAERS Safety Report 6457055-2 (Version None)
Quarter: 2009Q4

REPORT INFORMATION
  Report Type: 
  Country: None (occurrence: None)
  Receive Date: 20091125
  Receipt Date: 20091120
  Transmission Date: 20100525
  Serious: Yes (Hospitalization)
  Sender: FDA-Public Use
  Company Number: A0822122A

PATIENT
  Age: 62 Year
  Sex: Female

DRUGS (2)
  1. BUPROPION HYDROCHLORIDE [Suspect]
     Route: 048
     Dates: start: 20081101, end: 20090901
  2. VITAMINS [Concomitant]

REACTIONS (2)
  - PAIN [None]
  - PALPITATIONS [None]
